FAERS Safety Report 8784433 (Version 4)
Quarter: 2013Q1

REPORT INFORMATION
  Report Type: Spontaneous
  Country: US (occurrence: US)
  Receive Date: 20120913
  Receipt Date: 20130109
  Transmission Date: 20140127
  Serious: Yes (Other)
  Sender: FDA-Public Use
  Company Number: US-PFIZER INC-2012224129

PATIENT
  Sex: Female

DRUGS (3)
  1. SPIRONOLACTONE [Suspect]
     Dosage: UNK
  2. ALDACTONE [Suspect]
     Dosage: 100 MG, UNK
  3. AVAPRO [Suspect]
     Dosage: UNK

REACTIONS (1)
  - Blood testosterone increased [Unknown]
